FAERS Safety Report 8070756-8 (Version None)
Quarter: 2012Q1

REPORT INFORMATION
  Report Type: 
  Country: None (occurrence: None)
  Receive Date: 20120125
  Receipt Date: 20120120
  Transmission Date: 20120608
  Serious: Yes (Other)
  Sender: FDA-Public Use
  Company Number: US-JNJFOC-20120109068

PATIENT
  Sex: Male
  Weight: 65.77 kg

DRUGS (6)
  1. TAMSULOSIN HCL [Concomitant]
     Indication: PROSTATE CANCER
     Route: 048
  2. IBUPROFEN [Concomitant]
     Indication: PAIN
     Route: 065
  3. HYOPHEN [Concomitant]
     Indication: ANALGESIC THERAPY
     Route: 048
  4. BLOOD PRESSURE MEDICATION NOS [Suspect]
     Indication: HYPERTENSION
     Route: 065
  5. TOVIAZ [Concomitant]
     Indication: BLADDER SPASM
     Route: 048
     Dates: start: 20110101
  6. ELMIRON [Suspect]
     Indication: CYSTITIS RADIATION
     Dosage: 1 IN THE MORNING AND 2 AT NIGHT
     Route: 048
     Dates: start: 20111001

REACTIONS (6)
  - HYPERTENSION [None]
  - URETHRITIS [None]
  - PRODUCT QUALITY ISSUE [None]
  - ADVERSE EVENT [None]
  - WEIGHT INCREASED [None]
  - FLUID RETENTION [None]
